FAERS Safety Report 19834888 (Version 2)
Quarter: 2021Q3

REPORT INFORMATION
  Report Type: Spontaneous
  Country: US (occurrence: US)
  Receive Date: 20210915
  Receipt Date: 20210919
  Transmission Date: 20211014
  Serious: No
  Sender: FDA-Public Use
  Company Number: US-SA-2021SA303063

PATIENT
  Age: 73 Year
  Sex: Female

DRUGS (16)
  1. EPIPEN [Concomitant]
     Active Substance: EPINEPHRINE
  2. SSD [Concomitant]
     Active Substance: SILVER SULFADIAZINE
  3. AZATHIOPRINE. [Concomitant]
     Active Substance: AZATHIOPRINE
  4. DUPIXENT [Suspect]
     Active Substance: DUPILUMAB
     Indication: ASTHMA
     Dosage: 300 MG, QOW
     Route: 058
     Dates: start: 20210505
  5. DUPIXENT [Suspect]
     Active Substance: DUPILUMAB
     Indication: RHINITIS
  6. PREDNISONE. [Concomitant]
     Active Substance: PREDNISONE
     Indication: ASTHMA
  7. LEVOFLOXACIN. [Concomitant]
     Active Substance: LEVOFLOXACIN
  8. BUDESONIDE. [Concomitant]
     Active Substance: BUDESONIDE
  9. METHOTREXATE. [Concomitant]
     Active Substance: METHOTREXATE
  10. THEOPHYLLINE [Concomitant]
     Active Substance: THEOPHYLLINE ANHYDROUS
  11. FOLIC ACID. [Concomitant]
     Active Substance: FOLIC ACID
  12. DOXYCYCLINE HCL [Concomitant]
     Active Substance: DOXYCYCLINE HYDROCHLORIDE
  13. TERBUTALINE [Concomitant]
     Active Substance: TERBUTALINE
     Indication: ASTHMA
  14. TERBUTALINE [Concomitant]
     Active Substance: TERBUTALINE
  15. BUDESONIDE. [Concomitant]
     Active Substance: BUDESONIDE
  16. RACEPINEPHRINE HYDROCHLORIDE. [Concomitant]
     Active Substance: RACEPINEPHRINE HYDROCHLORIDE

REACTIONS (4)
  - Product dose omission issue [Unknown]
  - Asthma [Not Recovered/Not Resolved]
  - Rhinitis [Not Recovered/Not Resolved]
  - Product use in unapproved indication [Unknown]

NARRATIVE: CASE EVENT DATE: 20210830
